FAERS Safety Report 7298293-9 (Version None)
Quarter: 2011Q1

REPORT INFORMATION
  Report Type: 
  Country: None (occurrence: None)
  Receive Date: 20110217
  Receipt Date: 20100204
  Transmission Date: 20110831
  Serious: No
  Sender: FDA-Public Use
  Company Number: US-PFIZER INC-2009314796

PATIENT
  Sex: Female
  Weight: 57.6 kg

DRUGS (3)
  1. LEVOXYL [Concomitant]
     Dosage: 112 MG, UNK
  2. XALATAN [Suspect]
     Indication: GLAUCOMA
     Dosage: 0.005 %, UNK
     Route: 047
  3. EVISTA [Concomitant]
     Dosage: UNK

REACTIONS (1)
  - OCULAR HYPERAEMIA [None]
